FAERS Safety Report 9110505 (Version 2)
Quarter: 2013Q1

REPORT INFORMATION
  Report Type: Spontaneous
  Country: US (occurrence: US)
  Receive Date: 20130222
  Receipt Date: 20130306
  Transmission Date: 20140127
  Serious: Yes (Hospitalization, Other)
  Sender: FDA-Public Use
  Company Number: US-RB-050268-13

PATIENT
  Age: 21 Year
  Sex: Female

DRUGS (2)
  1. MUCINEX DM (GUAIFENESIN) [Suspect]
     Indication: DRUG ABUSE
     Dosage: TOOK MORE THAN 40 PILLS WITHIN THE LAST TWO WEEKS
     Route: 048
  2. MUCINEX DM (DEXTROMETHORPHAN HYDROBROMIDE) [Suspect]

REACTIONS (4)
  - Suicide attempt [Unknown]
  - Drug abuse [Unknown]
  - Unevaluable event [Unknown]
  - Unresponsive to stimuli [Unknown]
